FAERS Safety Report 7689653-2 (Version None)
Quarter: 2011Q3

REPORT INFORMATION
  Report Type: 
  Country: None (occurrence: None)
  Receive Date: 20110817
  Receipt Date: 20110808
  Transmission Date: 20111222
  Serious: Yes (Hospitalization)
  Sender: FDA-Public Use
  Company Number: US-ASTRAZENECA-2010SE16567

PATIENT
  Age: 30 Year
  Sex: Female
  Weight: 56.7 kg

DRUGS (9)
  1. BUSPIRONE [Concomitant]
  2. SEROQUEL [Suspect]
     Indication: BIPOLAR DISORDER
     Route: 048
  3. ZOLOFT [Concomitant]
  4. KEPPRA [Concomitant]
  5. SEROQUEL [Suspect]
     Route: 048
     Dates: start: 20050101
  6. GABAPENTIN [Concomitant]
  7. TRAZODONE HCL [Concomitant]
  8. SEROQUEL [Suspect]
     Dosage: 25 MG THREE TIMES A DAY AS REQUIRED
     Route: 048
  9. LITHIUM CARBONATE [Concomitant]

REACTIONS (4)
  - ANXIETY [None]
  - LOSS OF EMPLOYMENT [None]
  - ALCOHOLISM [None]
  - DRUG PRESCRIBING ERROR [None]
